FAERS Safety Report 22653808 (Version 1)
Quarter: 2023Q2

REPORT INFORMATION
  Report Type: Spontaneous
  Country: US (occurrence: None)
  Receive Date: 20230628
  Receipt Date: 20230628
  Transmission Date: 20230722
  Serious: No
  Sender: FDA-Public Use
  Company Number: None

PATIENT
  Age: 75 Year
  Sex: Female
  Weight: 51.71 kg

DRUGS (8)
  1. NORTRIPTYLINE [Suspect]
     Active Substance: NORTRIPTYLINE
     Indication: Sleep disorder
     Dosage: FREQUENCY : DAILY;  AT BEDTIME?
     Route: 048
     Dates: start: 202301, end: 202304
  2. LATANOPROST [Concomitant]
     Active Substance: LATANOPROST
  3. TIMOLOL [Concomitant]
     Active Substance: TIMOLOL
  4. CRESTOR [Concomitant]
     Active Substance: ROSUVASTATIN CALCIUM
  5. LOSARTAN [Concomitant]
     Active Substance: LOSARTAN
  6. VITAMIN B [Concomitant]
     Active Substance: VITAMIN B
  7. VITAMIN D [Concomitant]
     Active Substance: VITAMIN D NOS
  8. VITAMIN C [Concomitant]
     Active Substance: ASCORBIC ACID

REACTIONS (11)
  - Tremor [None]
  - Dry mouth [None]
  - Lip dry [None]
  - Rash [None]
  - Ear disorder [None]
  - Tinnitus [None]
  - Back pain [None]
  - Neck pain [None]
  - Insomnia [None]
  - Restlessness [None]
  - Weight increased [None]
